FAERS Safety Report 5134969-7 (Version None)
Quarter: 2006Q4

REPORT INFORMATION
  Report Type: 
  Country: None (occurrence: None)
  Receive Date: 20061025
  Receipt Date: 20061023
  Transmission Date: 20070319
  Serious: Yes (Other)
  Sender: FDA-Public Use
  Company Number: BE-BOEHRINGER INGELHEIM PHARMACEUTICALS, INC.-2006-DE-05595GD

PATIENT

DRUGS (2)
  1. CLONIDINE [Suspect]
     Route: 015
  2. ROPIVACAINE [Suspect]
     Route: 015

REACTIONS (2)
  - DRUG EXPOSURE DURING PREGNANCY [None]
  - FOETAL HEART RATE ABNORMAL [None]
